FAERS Safety Report 12477204 (Version 1)
Quarter: 2016Q2

REPORT INFORMATION
  Report Type: Spontaneous
  Country: US (occurrence: US)
  Receive Date: 20160617
  Receipt Date: 20160617
  Transmission Date: 20160815
  Serious: No
  Sender: FDA-Public Use
  Company Number: US-ALLERGAN-1657852US

PATIENT
  Age: 59 Year
  Sex: Female

DRUGS (6)
  1. NASOGEL SALINE [Concomitant]
     Indication: RHINITIS ALLERGIC
     Dosage: UNK
     Route: 045
  2. VIBERZI [Suspect]
     Active Substance: ELUXADOLINE
     Indication: IRRITABLE BOWEL SYNDROME
     Dosage: 75 MG, QD
     Route: 048
     Dates: start: 20160325
  3. NASACORT [Concomitant]
     Active Substance: TRIAMCINOLONE ACETONIDE
     Indication: RHINITIS ALLERGIC
     Dosage: UNK
     Route: 045
  4. VIBERZI [Suspect]
     Active Substance: ELUXADOLINE
     Dosage: 100 MG, QD
     Route: 048
     Dates: start: 20160510
  5. LYRICA [Concomitant]
     Active Substance: PREGABALIN
     Indication: ARTHRALGIA
  6. LYRICA [Concomitant]
     Active Substance: PREGABALIN
     Indication: BACK PAIN
     Route: 048

REACTIONS (11)
  - Incorrect dose administered [Unknown]
  - Tongue dry [Not Recovered/Not Resolved]
  - Dry mouth [Not Recovered/Not Resolved]
  - Stomatitis [Not Recovered/Not Resolved]
  - Lip dry [Not Recovered/Not Resolved]
  - Sjogren^s syndrome [Unknown]
  - Dry eye [Not Recovered/Not Resolved]
  - Irritable bowel syndrome [Recovered/Resolved]
  - Nasal dryness [Not Recovered/Not Resolved]
  - Stomatitis [Not Recovered/Not Resolved]
  - Vulvovaginal dryness [Not Recovered/Not Resolved]

NARRATIVE: CASE EVENT DATE: 2016
